FAERS Safety Report 5311443-6 (Version None)
Quarter: 2007Q2

REPORT INFORMATION
  Report Type: 
  Country: None (occurrence: None)
  Receive Date: 20070426
  Receipt Date: 20070426
  Transmission Date: 20071010
  Serious: No
  Sender: FDA-Public Use
  Company Number: None

PATIENT

DRUGS (1)
  1. LISTERINE CHILDREN'S MOUTHWASH [Suspect]

REACTIONS (4)
  - LYMPHADENOPATHY [None]
  - PYREXIA [None]
  - STOMATITIS [None]
  - THERAPEUTIC PRODUCT CONTAMINATION [None]
